FAERS Safety Report 6371849-3 (Version None)
Quarter: 2009Q3

REPORT INFORMATION
  Report Type: 
  Country: None (occurrence: None)
  Receive Date: 20090923
  Receipt Date: 20090914
  Transmission Date: 20100115
  Serious: Yes (Other)
  Sender: FDA-Public Use
  Company Number: PHHY2009GB39676

PATIENT
  Sex: Female

DRUGS (2)
  1. DIOVAN [Suspect]
     Indication: HYPERTENSION
     Route: 048
  2. DILTIAZEM [Concomitant]

REACTIONS (7)
  - EYELIDS PRURITUS [None]
  - HOT FLUSH [None]
  - PRURITUS [None]
  - RASH [None]
  - SKIN DISCOLOURATION [None]
  - SWELLING [None]
  - SWELLING FACE [None]
